FAERS Safety Report 9206605 (Version 1)
Quarter: 2013Q2

REPORT INFORMATION
  Report Type: Spontaneous
  Country: US (occurrence: None)
  Receive Date: 20130401
  Receipt Date: 20130401
  Transmission Date: 20140414
  Serious: Yes (Hospitalization)
  Sender: FDA-Public Use
  Company Number: None

PATIENT
  Age: 62 Year
  Sex: Female
  Weight: 75.1 kg

DRUGS (1)
  1. CISPLATIN [Suspect]

REACTIONS (11)
  - Asthenia [None]
  - Nausea [None]
  - Vomiting [None]
  - Pelvic pain [None]
  - Dizziness [None]
  - Dyspnoea [None]
  - Anaemia [None]
  - Neutrophil count decreased [None]
  - White blood cell count decreased [None]
  - Platelet count decreased [None]
  - Dehydration [None]
